FAERS Safety Report 4938504-5 (Version None)
Quarter: 2006Q1

REPORT INFORMATION
  Report Type: 
  Country: None (occurrence: None)
  Receive Date: 20060302
  Receipt Date: 20060210
  Transmission Date: 20060701
  Serious: Yes (Death, Hospitalization)
  Sender: FDA-Public Use
  Company Number: DE200601002223

PATIENT
  Age: 70 Year
  Sex: Female

DRUGS (7)
  1. FORTEO [Suspect]
     Indication: OSTEOPOROTIC FRACTURE
     Dosage: 20 UG, DAILY (1/D)
     Dates: start: 20051109
  2. FORTEO [Concomitant]
  3. DOCITON (PROPRANOLOL HYDROCHLORIDE) [Concomitant]
  4. DELIX PLUS (HYDROCHLOROTHIAZIDE) [Concomitant]
  5. MIRTAZAPINE [Concomitant]
  6. DUROGESIC /DEN/ (FENTANYL) [Concomitant]
  7. PREGABALIN (PREGABALIN) [Concomitant]

REACTIONS (12)
  - CEREBRAL ARTERY OCCLUSION [None]
  - CEREBRAL HAEMORRHAGE [None]
  - CEREBRAL ISCHAEMIA [None]
  - CONTUSION [None]
  - DIZZINESS [None]
  - FALL [None]
  - HOSTILITY [None]
  - HYPOAESTHESIA ORAL [None]
  - MALAISE [None]
  - PARAESTHESIA [None]
  - RESTLESSNESS [None]
  - VOMITING [None]
